FAERS Safety Report 5905818-1 (Version None)
Quarter: 2008Q4

REPORT INFORMATION
  Report Type: 
  Country: None (occurrence: None)
  Receive Date: 20081002
  Receipt Date: 20080925
  Transmission Date: 20090506
  Serious: Yes (Hospitalization)
  Sender: FDA-Public Use
  Company Number: B0538739A

PATIENT
  Age: 45 Year
  Sex: Male

DRUGS (10)
  1. AUGMENTIN '125' [Suspect]
     Indication: ANTIBIOTIC THERAPY
     Dosage: 2G PER DAY
     Route: 042
     Dates: start: 20080830, end: 20080830
  2. NIMBEX [Suspect]
     Indication: DRUG USE FOR UNKNOWN INDICATION
     Route: 042
     Dates: start: 20080830, end: 20080830
  3. CELOCURINE [Suspect]
     Indication: DRUG USE FOR UNKNOWN INDICATION
     Route: 042
     Dates: start: 20080830, end: 20080830
  4. ATROPINE [Suspect]
     Indication: DRUG USE FOR UNKNOWN INDICATION
     Route: 042
     Dates: start: 20080830, end: 20080830
  5. FLUMAZENIL [Suspect]
     Indication: DRUG USE FOR UNKNOWN INDICATION
     Route: 042
     Dates: start: 20080830, end: 20080830
  6. MIDAZOLAM HCL [Concomitant]
     Indication: DRUG USE FOR UNKNOWN INDICATION
     Route: 042
     Dates: start: 20080830, end: 20080101
  7. SUFENTA PRESERVATIVE FREE [Concomitant]
     Indication: DRUG USE FOR UNKNOWN INDICATION
     Route: 042
     Dates: start: 20080830, end: 20080101
  8. NORADRENALINE [Concomitant]
     Indication: DRUG USE FOR UNKNOWN INDICATION
     Route: 042
     Dates: start: 20080830, end: 20080101
  9. URBANYL [Concomitant]
     Route: 065
     Dates: end: 20080830
  10. VALIUM [Concomitant]
     Route: 065
     Dates: end: 20080830

REACTIONS (4)
  - ANAPHYLACTIC SHOCK [None]
  - ERYTHEMA [None]
  - HAEMODYNAMIC INSTABILITY [None]
  - RASH [None]
